FAERS Safety Report 5022490-6 (Version None)
Quarter: 2006Q2

REPORT INFORMATION
  Report Type: 
  Country: None (occurrence: None)
  Receive Date: 20060609
  Receipt Date: 20060424
  Transmission Date: 20061013
  Serious: Yes (Hospitalization)
  Sender: FDA-Public Use
  Company Number: US-ROCHE-445756

PATIENT
  Age: 53 Year
  Sex: Female
  Weight: 77.1 kg

DRUGS (6)
  1. PEGASYS [Suspect]
     Indication: HEPATITIS C
     Route: 058
     Dates: start: 20060131
  2. COPEGUS [Suspect]
     Indication: HEPATITIS C
     Dosage: 400 MG IN THE MORNING AND 600 MG IN THE EVENING.
     Route: 048
     Dates: start: 20060131
  3. DIOVAN [Concomitant]
     Indication: HYPERTENSION
     Route: 048
  4. TOFRANIL [Concomitant]
     Indication: URINARY INCONTINENCE
     Route: 048
  5. THYROID TAB [Concomitant]
     Indication: HYPOTHYROIDISM
  6. AMBIEN [Concomitant]
     Indication: INSOMNIA

REACTIONS (5)
  - ANKLE FRACTURE [None]
  - DIARRHOEA [None]
  - FACIAL BONES FRACTURE [None]
  - RASH PRURITIC [None]
  - ROAD TRAFFIC ACCIDENT [None]
